FAERS Safety Report 10953106 (Version 8)
Quarter: 2015Q4

REPORT INFORMATION
  Report Type: Spontaneous
  Country: US (occurrence: US)
  Receive Date: 20150325
  Receipt Date: 20151215
  Transmission Date: 20160304
  Serious: Yes (Hospitalization, Other)
  Sender: FDA-Public Use
  Company Number: US-PFIZER INC-2015099254

PATIENT
  Age: 72 Year
  Sex: Male

DRUGS (8)
  1. SUTENT [Suspect]
     Active Substance: SUNITINIB MALATE
     Indication: METASTATIC RENAL CELL CARCINOMA
     Dosage: 50 MG + 37.5 MG 2 WEEKS 1 DAILY, 1 WK OFF
     Dates: start: 200705
  2. SUTENT [Suspect]
     Active Substance: SUNITINIB MALATE
     Dosage: UNK
     Dates: start: 200711, end: 200905
  3. SUTENT [Suspect]
     Active Substance: SUNITINIB MALATE
     Dosage: 50 MG, CYCLIC (DAILY FOR 2 WKS ON/1WK OFF)
  4. SUTENT [Suspect]
     Active Substance: SUNITINIB MALATE
     Dosage: UNK
     Dates: start: 201502
  5. CASODEX [Concomitant]
     Active Substance: BICALUTAMIDE
     Dosage: 1 DAILY + 1 INJECTION EVERY 3-4 MONTHS
  6. SUTENT [Suspect]
     Active Substance: SUNITINIB MALATE
     Dosage: UNK
     Dates: start: 201311, end: 201408
  7. SUTENT [Suspect]
     Active Substance: SUNITINIB MALATE
     Dosage: UNK
  8. SUTENT [Suspect]
     Active Substance: SUNITINIB MALATE
     Dosage: 37.5 MG, CYCLIC, (EVERY DAY, DAYS 1-14 EVERY 21 DAYS)
     Route: 048

REACTIONS (6)
  - Prostate cancer [Unknown]
  - Metastatic renal cell carcinoma [Not Recovered/Not Resolved]
  - Epistaxis [Unknown]
  - Hip fracture [Recovered/Resolved]
  - Disease progression [Not Recovered/Not Resolved]
  - Second primary malignancy [Unknown]

NARRATIVE: CASE EVENT DATE: 2011
